FAERS Safety Report 5415484-X (Version None)
Quarter: 2007Q3

REPORT INFORMATION
  Report Type: 
  Country: None (occurrence: None)
  Receive Date: 20070815
  Receipt Date: 20070731
  Transmission Date: 20080115
  Serious: Yes (Other)
  Sender: FDA-Public Use
  Company Number: US-ROCHE-503421

PATIENT
  Age: 94 Year
  Sex: Female
  Weight: 53.5 kg

DRUGS (4)
  1. BONIVA [Suspect]
     Indication: DRUG USE FOR UNKNOWN INDICATION
     Route: 065
     Dates: start: 20060101
  2. MULTI-VITAMINS [Concomitant]
  3. THYROID TAB [Concomitant]
  4. UNSPECIFIED DRUG [Concomitant]
     Dosage: REPORTED AS ^BLOOD PRESSURE MEDICATION^

REACTIONS (2)
  - BODY HEIGHT DECREASED [None]
  - DIZZINESS [None]
